FAERS Safety Report 9371485 (Version 1)
Quarter: 2013Q2

REPORT INFORMATION
  Report Type: Spontaneous
  Country: JP (occurrence: JP)
  Receive Date: 20130627
  Receipt Date: 20130627
  Transmission Date: 20140414
  Serious: Yes (Death, Hospitalization)
  Sender: FDA-Public Use
  Company Number: JP-JNJFOC-20130521222

PATIENT
  Age: 89 Year
  Sex: Female
  Weight: 60 kg

DRUGS (6)
  1. XARELTO [Suspect]
     Indication: CEREBROVASCULAR ACCIDENT PROPHYLAXIS
     Route: 048
     Dates: start: 20130220, end: 20130401
  2. XARELTO [Suspect]
     Indication: ATRIAL FIBRILLATION
     Route: 048
     Dates: start: 20130220, end: 20130401
  3. TAKEPRON [Concomitant]
     Indication: GASTROOESOPHAGEAL REFLUX DISEASE
     Route: 048
     Dates: start: 20130215, end: 20130401
  4. ONEALFA [Concomitant]
     Indication: OSTEOPOROSIS
     Route: 048
     Dates: start: 20111014, end: 20130401
  5. DIGOXIN [Concomitant]
     Indication: ATRIAL FIBRILLATION
     Route: 048
     Dates: start: 20070809, end: 20130401
  6. JU-KAMA [Concomitant]
     Indication: CONSTIPATION
     Route: 048
     Dates: start: 20130301, end: 20130401

REACTIONS (2)
  - Septic shock [Fatal]
  - Cerebellar haemorrhage [Not Recovered/Not Resolved]
